FAERS Safety Report 24571101 (Version 1)
Quarter: 2024Q4

REPORT INFORMATION
  Report Type: Report from Study
  Country: US (occurrence: US)
  Receive Date: 20241101
  Receipt Date: 20241101
  Transmission Date: 20250114
  Serious: Yes (Other)
  Sender: ABBVIE
  Company Number: US-ABBVIE-5979036

PATIENT
  Age: 81 Year
  Sex: Female

DRUGS (21)
  1. LINZESS [Suspect]
     Active Substance: LINACLOTIDE
     Indication: Irritable bowel syndrome
     Route: 048
     Dates: start: 2022
  2. AMBIEN [Concomitant]
     Active Substance: ZOLPIDEM TARTRATE
     Indication: Urinary retention
     Dates: start: 2019
  3. Bethamechole [Concomitant]
     Indication: Urinary retention
     Dosage: 25MG TABLET 1 BY MOUTH TWICE DAIL
     Dates: start: 2021
  4. PIOGLITAZONE [Concomitant]
     Active Substance: PIOGLITAZONE
     Indication: Diabetes mellitus
     Dosage: 15 MG
     Dates: start: 2019
  5. CELEBREX [Concomitant]
     Active Substance: CELECOXIB
     Indication: Back disorder
     Dosage: 10 MG ZETIA ONCE A DAY 10MG BY MOUTH DAILY
     Dates: start: 1980
  6. VALSARTAN [Concomitant]
     Active Substance: VALSARTAN
     Indication: Hypertension
     Dosage: 320MG TABLETS ONCE A DAY EVCERYDAY
  7. HYDRALAZINE [Concomitant]
     Active Substance: HYDRALAZINE HYDROCHLORIDE
     Indication: Palpitations
     Dates: start: 2019
  8. TRAMADOL [Concomitant]
     Active Substance: TRAMADOL
     Indication: Neck pain
     Dosage: 50MG  TAKES VERY RARELY BUT CUTS IN HALF TO 25MG
     Dates: start: 1990
  9. ZIOPTAN [Concomitant]
     Active Substance: TAFLUPROST
     Indication: Glaucoma
     Dosage: PF 0.0015%
     Dates: start: 2019
  10. VITAMIN B12 [Concomitant]
     Active Substance: CYANOCOBALAMIN
     Indication: Anaemia
     Dosage: ONCE A MONTH 1000MCG
     Dates: start: 2004
  11. SULFAMETHOXAZOLE\TRIMETHOPRIM [Concomitant]
     Active Substance: SULFAMETHOXAZOLE\TRIMETHOPRIM
     Indication: Antibiotic therapy
     Dosage: 1 CAPSULE 100MG DAILY BASIS
     Dates: start: 20241003
  12. GLIPIZIDE [Concomitant]
     Active Substance: GLIPIZIDE
     Indication: Diabetes mellitus
     Dates: start: 2019
  13. Panthoprozole [Concomitant]
     Indication: Gastrooesophageal reflux disease
     Dosage: 40 MG 1 TABLET BY MOUTH BEFORE BREAKFAST
     Dates: start: 2004
  14. ASPIRIN [Concomitant]
     Active Substance: ASPIRIN
     Indication: Anticoagulant therapy
     Dosage: 81 MILLIGRAM
     Dates: start: 1996
  15. EZETIMIBE [Concomitant]
     Active Substance: EZETIMIBE
     Indication: Blood cholesterol increased
     Dosage: 10 MG ZETIA ONCE A DAY 10MG BY MOUTH DAILY
     Dates: start: 2004
  16. TYLENOL [Concomitant]
     Active Substance: ACETAMINOPHEN
     Indication: Back pain
     Dosage: 500 MG
     Dates: start: 1990
  17. ISOSORBIDE MONONITRATE [Concomitant]
     Active Substance: ISOSORBIDE MONONITRATE
     Indication: Blood pressure measurement
     Dosage: ER 60MG 1 TABLET EVERY DAY
     Dates: start: 2019
  18. LEVOTHYROXINE SODIUM [Suspect]
     Active Substance: LEVOTHYROXINE SODIUM
     Indication: Thyroid disorder
     Dosage: 75 MCVG 1 TABLET A DAY
     Route: 048
     Dates: start: 2000
  19. METOPROLOL [Concomitant]
     Active Substance: METOPROLOL
     Indication: Blood pressure measurement
     Dosage: 25 MILLIGRAM
     Dates: start: 1990
  20. FLOMAX [Concomitant]
     Active Substance: TAMSULOSIN HYDROCHLORIDE
     Indication: Urinary retention
  21. METAMUCIL [Concomitant]
     Active Substance: PLANTAGO SEED
     Indication: Product used for unknown indication

REACTIONS (6)
  - Spinal operation [Unknown]
  - Sciatica [Unknown]
  - Dizziness [Recovered/Resolved]
  - Fear [Unknown]
  - Off label use [Unknown]
  - Neck surgery [Unknown]

NARRATIVE: CASE EVENT DATE: 20220101
